FAERS Safety Report 17199674 (Version 1)
Quarter: 2019Q4

REPORT INFORMATION
  Report Type: Report from Study
  Country: US (occurrence: US)
  Receive Date: 20191226
  Receipt Date: 20191226
  Transmission Date: 20200122
  Serious: No
  Sender: FDA-Public Use
  Company Number: NVSC2019US079457

PATIENT
  Age: 41 Year
  Sex: Female

DRUGS (1)
  1. SANDOSTATIN LAR DEPOT [Suspect]
     Active Substance: OCTREOTIDE ACETATE
     Indication: CARCINOID SYNDROME
     Dosage: 30 MG, QMO
     Route: 030
     Dates: start: 201009, end: 201107

REACTIONS (3)
  - Abdominal distension [Unknown]
  - Injection site pain [Unknown]
  - Mood altered [Unknown]

NARRATIVE: CASE EVENT DATE: 201009
